FAERS Safety Report 16998656 (Version 2)
Quarter: 2019Q4

REPORT INFORMATION
  Report Type: Report from Study
  Country: US (occurrence: US)
  Receive Date: 20191105
  Receipt Date: 20191126
  Transmission Date: 20200122
  Serious: Yes (Other)
  Sender: FDA-Public Use
  Company Number: PHHY2019US016745

PATIENT
  Age: 36 Year
  Sex: Female

DRUGS (1)
  1. GILENYA [Suspect]
     Active Substance: FINGOLIMOD HYDROCHLORIDE
     Indication: MULTIPLE SCLEROSIS
     Route: 065

REACTIONS (6)
  - Parathyroid tumour benign [Recovered/Resolved]
  - Lymphopenia [Unknown]
  - Hyperparathyroidism [Recovered/Resolved]
  - Melanocytic naevus [Unknown]
  - Lentigo [Unknown]
  - Sebaceous hyperplasia [Unknown]

NARRATIVE: CASE EVENT DATE: 20161026
